FAERS Safety Report 14109582 (Version 1)
Quarter: 2017Q4

REPORT INFORMATION
  Report Type: Spontaneous
  Country: FR (occurrence: FR)
  Receive Date: 20171020
  Receipt Date: 20171020
  Transmission Date: 20180321
  Serious: Yes (Hospitalization, Other)
  Sender: FDA-Public Use
  Company Number: FR-ROCHE-2006147

PATIENT
  Age: 76 Year
  Sex: Female

DRUGS (11)
  1. INNOHEP [Suspect]
     Active Substance: TINZAPARIN SODIUM
     Indication: ANTICOAGULANT THERAPY
     Route: 058
     Dates: end: 20170920
  2. LANSOPRAZOLE. [Concomitant]
     Active Substance: LANSOPRAZOLE
  3. ROSUVASTATINE [Concomitant]
     Active Substance: ROSUVASTATIN
  4. METFORMINE [Concomitant]
     Active Substance: METFORMIN HYDROCHLORIDE
  5. DAFALGAN [Concomitant]
     Active Substance: ACETAMINOPHEN
  6. PACLITAXEL. [Suspect]
     Active Substance: PACLITAXEL
     Indication: BREAST CANCER
     Route: 042
     Dates: start: 20170830, end: 20170830
  7. BISOPROLOL FUMARAT [Concomitant]
  8. HERCEPTIN [Suspect]
     Active Substance: TRASTUZUMAB
     Indication: BREAST CANCER
     Route: 042
     Dates: start: 20170830, end: 20170830
  9. UVEDOSE [Concomitant]
     Active Substance: CHOLECALCIFEROL
  10. IRBESARTAN. [Concomitant]
     Active Substance: IRBESARTAN
  11. GLIBENCLAMIDE [Concomitant]
     Active Substance: GLYBURIDE
     Route: 065

REACTIONS (4)
  - Disease progression [Recovering/Resolving]
  - Drug ineffective [Unknown]
  - Renal haematoma [Recovering/Resolving]
  - Anaemia [Not Recovered/Not Resolved]

NARRATIVE: CASE EVENT DATE: 20170907
